FAERS Safety Report 18287619 (Version 1)
Quarter: 2020Q3

REPORT INFORMATION
  Report Type: Spontaneous
  Country: US (occurrence: US)
  Receive Date: 20200918
  Receipt Date: 20200918
  Transmission Date: 20201103
  Serious: No
  Sender: FDA-Public Use
  Company Number: None

PATIENT
  Sex: Male

DRUGS (1)
  1. NORDITROPIN [Suspect]
     Active Substance: SOMATROPIN
     Indication: OCULOCEREBRORENAL SYNDROME
     Route: 058
     Dates: start: 20200410

REACTIONS (2)
  - Nipple disorder [None]
  - Breast mass [None]
